FAERS Safety Report 7412158-0 (Version None)
Quarter: 2011Q2

REPORT INFORMATION
  Report Type: 
  Country: None (occurrence: None)
  Receive Date: 20110413
  Receipt Date: 20110406
  Transmission Date: 20111010
  Serious: Yes (Death, Life-Threatening, Hospitalization, Other)
  Sender: FDA-Public Use
  Company Number: FR-PFIZER INC-2010153713

PATIENT
  Age: 75 Year
  Sex: Male
  Weight: 67 kg

DRUGS (68)
  1. ARGATROBAN [Suspect]
     Indication: HEPARIN-INDUCED THROMBOCYTOPENIA
     Dosage: 0.12 MCG/KG/MIN (0.5 ML/HR)
     Route: 042
     Dates: start: 20101105, end: 20101110
  2. PROPOFOL [Concomitant]
     Indication: SEDATION
     Dosage: UNK (4 ML, CONTINUOUS)
     Route: 042
     Dates: start: 20101026, end: 20101029
  3. PROPOFOL [Concomitant]
     Dosage: MAX DOSE: 6 ML/H (4 ML, CONTINUOUS)
     Route: 042
     Dates: start: 20101031, end: 20101101
  4. PROPOFOL [Concomitant]
     Dosage: MAX DOSE: 8 ML/H (1 ML, CONTINUOUS)
     Route: 042
     Dates: start: 20101105, end: 20101114
  5. ESOMEPRAZOLE [Concomitant]
     Indication: PROPHYLAXIS AGAINST GASTROINTESTINAL ULCER
     Dosage: 40 MG, 1X/DAY
     Route: 042
     Dates: start: 20101031, end: 20101031
  6. COROTROPE [Concomitant]
     Indication: HAEMODYNAMIC INSTABILITY
     Dosage: 1 MG, 1X/DAY
     Route: 042
     Dates: start: 20101028, end: 20101029
  7. VITAMIN K TAB [Concomitant]
     Indication: PARENTERAL NUTRITION
     Dosage: 5 MG, 1X/DAY
     Route: 042
     Dates: start: 20101030, end: 20101030
  8. HEPARIN SODIUM [Concomitant]
     Indication: EXTRACORPOREAL CIRCULATION
     Dosage: 30000 IU, 1X/DAY
     Route: 042
     Dates: start: 20101025, end: 20101025
  9. VOLUVEN [Concomitant]
     Dosage: 250 ML, 2X/DAY
     Route: 042
     Dates: start: 20101102, end: 20101102
  10. LASIX [Concomitant]
     Indication: OLIGURIA
     Dosage: 20 MG, 1X/DAY
     Route: 042
     Dates: start: 20101027, end: 20101028
  11. NORADRENALINE [Concomitant]
     Dosage: MAX DOSE: 2.4 MG/H (0.05 MG, CONTINUOUS)
     Route: 042
     Dates: start: 20101027, end: 20101029
  12. ASPEGIC 325 [Concomitant]
     Indication: ANTICOAGULANT THERAPY
     Dosage: 100 MG, 1X/DAY
     Route: 048
     Dates: start: 20101031, end: 20101112
  13. KETAMINE [Concomitant]
     Indication: ANALGESIC THERAPY
     Dosage: 8 MG, UNK
     Route: 042
     Dates: start: 20101031, end: 20101113
  14. INSULIN PORCINE [Concomitant]
     Indication: POSITIVE CARDIAC INOTROPIC EFFECT
     Dosage: 300 IU, CONTINUOUS
     Route: 042
     Dates: start: 20101025, end: 20101026
  15. PLASMION [Concomitant]
     Dosage: 250 ML, 2X/DAY
     Dates: start: 20101107, end: 20101107
  16. PLASMION [Concomitant]
     Dosage: 250 ML, 3X/DAY
     Dates: start: 20101108, end: 20101108
  17. ACTRAPID [Concomitant]
     Dosage: 4 IU, 1X/DAY
     Route: 042
     Dates: start: 20101025, end: 20101025
  18. CALCIUM FOLINATE [Concomitant]
     Indication: MEDICAL DIET
     Dosage: 5 MG, 1X/DAY
     Route: 042
     Dates: start: 20101107, end: 20101108
  19. VOLUVEN [Concomitant]
     Indication: HYPOVOLAEMIA
     Dosage: 250 ML, 2X/DAY
     Route: 042
     Dates: start: 20101026, end: 20101027
  20. OMEPRAZOLE [Concomitant]
     Indication: PROPHYLAXIS AGAINST GASTROINTESTINAL ULCER
     Dosage: 40 MG, 1X/DAY
     Route: 042
     Dates: start: 20101029, end: 20101030
  21. OMEPRAZOLE [Concomitant]
     Dosage: 40 MG, 1X/DAY
     Route: 042
     Dates: start: 20101101, end: 20101107
  22. REMIFENTANIL [Concomitant]
     Indication: SEDATION
     Dosage: MAX DOSE: 0.8 MG/H (CONTINUOUS)
     Route: 042
     Dates: start: 20101030, end: 20101114
  23. NORADRENALINE [Concomitant]
     Dosage: UNK (0.05 MG, CONTINUOUS)
     Route: 042
     Dates: start: 20101026, end: 20101027
  24. KETAMINE [Concomitant]
     Indication: SEDATION
  25. PLASMION [Concomitant]
     Dosage: 500 ML, 1X/DAY
     Dates: start: 20101031, end: 20101031
  26. FUROSEMIDE [Concomitant]
     Indication: OLIGURIA
     Dosage: 20 MG, 2X/DAY
     Dates: start: 20101030, end: 20101101
  27. COROTROPE [Concomitant]
     Dosage: 2 MG, 1X/DAY
     Route: 042
     Dates: start: 20101101, end: 20101101
  28. HYDROCORTISONE HYDROGEN SUCCINATE [Concomitant]
     Indication: ADRENAL INSUFFICIENCY
  29. CLAVENTIN [Concomitant]
     Indication: INFECTION
     Dosage: 3 G, 2X/DAY
     Route: 042
     Dates: start: 20101103, end: 20101110
  30. ASPEGIC 325 [Concomitant]
     Indication: MYOCARDIAL ISCHAEMIA
  31. PARACETAMOL [Concomitant]
     Indication: PAIN PROPHYLAXIS
     Dosage: 1 G, 3X/DAY
     Route: 042
     Dates: start: 20101026, end: 20101028
  32. PARACETAMOL [Concomitant]
     Dosage: 1 G, 2X/DAY
     Route: 042
     Dates: start: 20101031, end: 20101031
  33. PARACETAMOL [Concomitant]
     Dosage: 1 G, 1X/DAY
     Route: 042
     Dates: start: 20101102, end: 20101102
  34. COROTROPE [Concomitant]
     Dosage: 1 MG, 1X/DAY
     Route: 042
     Dates: start: 20101106, end: 20101106
  35. OMEPRAZOLE [Concomitant]
     Dosage: 40 MG, 1X/DAY
     Route: 042
     Dates: start: 20101109, end: 20101109
  36. HYDROCORTISONE HYDROGEN SUCCINATE [Concomitant]
     Indication: INFLAMMATION
     Dosage: 8.33 MG, UNK
     Route: 042
     Dates: start: 20101109, end: 20101114
  37. VANCOMYCIN [Concomitant]
     Dosage: 1 G, 1X/DAY
     Dates: start: 20101105, end: 20101105
  38. ADRENALIN IN OIL INJ [Concomitant]
     Indication: HAEMODYNAMIC INSTABILITY
     Dosage: MAX DOSE: 1.66 MG/H (0.02 MG, CONTINUOUS)
     Route: 042
     Dates: start: 20101026, end: 20101107
  39. PLASMION [Concomitant]
     Indication: HYPOVOLAEMIA
     Dosage: 500 ML, 1X/DAY
     Dates: start: 20101026, end: 20101026
  40. PLASMION [Concomitant]
     Dosage: 250 ML, 2X/DAY
     Dates: start: 20101028, end: 20101028
  41. ACTRAPID [Concomitant]
     Dosage: 5 IU, 2X/DAY
     Route: 042
     Dates: start: 20101025, end: 20101026
  42. KAYEXALATE [Concomitant]
     Indication: HYPERKALAEMIA
     Dosage: 3 G, 1X/DAY
     Route: 048
     Dates: start: 20101027, end: 20101027
  43. VITAMIN B-12 [Concomitant]
     Indication: SUPPLEMENTATION THERAPY
     Dosage: 1000 MG, 1X/DAY
     Route: 042
     Dates: start: 20101029, end: 20101029
  44. NIMBEX [Concomitant]
     Indication: SEDATION
     Dosage: 10 MG, 1X/DAY
     Route: 042
     Dates: start: 20101031, end: 20101031
  45. HYPNOVEL [Concomitant]
     Indication: SEDATION
     Dosage: 2 MG, 1X/DAY
     Route: 042
     Dates: start: 20101105, end: 20101105
  46. VOLUVEN [Concomitant]
     Dosage: 250 ML, 1X/DAY
     Route: 042
     Dates: start: 20101026, end: 20101026
  47. VOLUVEN [Concomitant]
     Dosage: 500 ML, 1X/DAY
     Route: 042
     Dates: start: 20101029, end: 20101029
  48. VOLUVEN [Concomitant]
     Dosage: 250 ML, 1X/DAY
     Route: 042
     Dates: start: 20101103, end: 20101103
  49. VOLUVEN [Concomitant]
     Dosage: 250 ML, 2X/DAY
     Route: 042
     Dates: start: 20101109, end: 20101109
  50. HYDROCORTISONE HYDROGEN SUCCINATE [Concomitant]
     Indication: VASOPLEGIA SYNDROME
  51. GLUCOSE [Concomitant]
     Indication: POSITIVE CARDIAC INOTROPIC EFFECT
     Dosage: UNK (10 ML, CONTINUOUS)
     Route: 042
     Dates: start: 20101025, end: 20101026
  52. PLASMION [Concomitant]
     Dosage: 250 ML, 2X/DAY
     Dates: start: 20101105, end: 20101105
  53. ACTRAPID [Concomitant]
     Indication: HYPERGLYCAEMIA
     Dosage: MAX DOSE: 8 UI/H (2 IU, CONTINUOUS)
     Route: 042
     Dates: start: 20101025, end: 20101026
  54. COROTROPE [Concomitant]
     Dosage: 1 MG, 1X/DAY
     Route: 042
     Dates: start: 20101105, end: 20101107
  55. CORDARONE [Concomitant]
     Indication: ARRHYTHMIA PROPHYLAXIS
     Dosage: MAX DOSE: 25 MG/H (6.25 MG, CONTINUOUS)
     Route: 042
     Dates: start: 20101026, end: 20101114
  56. AMIODARONE [Concomitant]
     Indication: ARRHYTHMIA
     Dosage: UNK
     Route: 042
     Dates: start: 20101025, end: 20101114
  57. VANCOMYCIN [Concomitant]
     Indication: INFECTION
     Dosage: .083 G, 1X/DAY
     Route: 042
     Dates: start: 20101107, end: 20101114
  58. PARACETAMOL [Concomitant]
     Dosage: 1 G, 3X/DAY
     Route: 042
     Dates: start: 20101030, end: 20101030
  59. PARACETAMOL [Concomitant]
     Dosage: 1 G, 4X/DAY
     Route: 042
     Dates: start: 20101101, end: 20101101
  60. ESOMEPRAZOLE [Concomitant]
     Dosage: 40 MG, 1X/DAY
     Route: 042
     Dates: start: 20101108, end: 20101108
  61. EPHEDRINE [Concomitant]
     Indication: HYPOTENSION
     Dosage: 15 MG, 1X/DAY
     Route: 042
     Dates: start: 20101031, end: 20101031
  62. ACLOTINE [Concomitant]
     Indication: ANTITHROMBIN III DEFICIENCY
     Dosage: 2500 IU, 1X/DAY
     Route: 042
     Dates: start: 20101104, end: 20101104
  63. ARGATROBAN [Suspect]
     Dosage: 0.12 MCG/KG/MIN (0.5 ML/HR)
     Route: 042
     Dates: start: 20101112, end: 20101113
  64. NORADRENALINE [Concomitant]
     Indication: HAEMODYNAMIC INSTABILITY
     Dosage: MAX DOSE: 7 MG/H (0.85 MG, CONTINUOUS)
     Route: 042
     Dates: start: 20101031, end: 20101114
  65. PARACETAMOL [Concomitant]
     Dosage: 1 G, 2X/DAY
     Route: 042
     Dates: start: 20101029, end: 20101029
  66. LEDERFOLIN [Concomitant]
     Indication: SUPPLEMENTATION THERAPY
     Dosage: 5 MG, 1X/DAY
     Dates: start: 20101029, end: 20101113
  67. ALBUMIN HUMAN [Concomitant]
     Indication: HYPOALBUMINAEMIA
     Dosage: UNK
     Route: 042
     Dates: start: 20101026, end: 20101109
  68. NEXIUM [Concomitant]
     Indication: GASTRIC ULCER
     Dosage: 40 MG, 1X/DAY
     Route: 042
     Dates: start: 20101025, end: 20101028

REACTIONS (3)
  - HAEMATEMESIS [None]
  - MULTI-ORGAN FAILURE [None]
  - RECTAL HAEMORRHAGE [None]
